FAERS Safety Report 10126371 (Version 1)
Quarter: 2014Q2

REPORT INFORMATION
  Report Type: Spontaneous
  Country: FR (occurrence: FR)
  Receive Date: 20140427
  Receipt Date: 20140427
  Transmission Date: 20141212
  Serious: Yes (Other)
  Sender: FDA-Public Use
  Company Number: FR-BRISTOL-MYERS SQUIBB COMPANY-20672291

PATIENT
  Sex: Male

DRUGS (2)
  1. COUMADINE [Suspect]
     Route: 048
  2. TOBRAMYCIN + DEXAMETHASONE [Suspect]
     Dates: end: 20140419

REACTIONS (1)
  - Palpitations [Not Recovered/Not Resolved]
